FAERS Safety Report 5456393-X (Version None)
Quarter: 2007Q3

REPORT INFORMATION
  Report Type: 
  Country: None (occurrence: None)
  Receive Date: 20070918
  Receipt Date: 20070911
  Transmission Date: 20080115
  Serious: Yes (Hospitalization)
  Sender: FDA-Public Use
  Company Number: FR-ASTRAZENECA-2007CG01286

PATIENT
  Age: 16 Year
  Sex: Female

DRUGS (5)
  1. MERONEM [Suspect]
     Indication: LUNG INFECTION PSEUDOMONAL
     Route: 042
     Dates: start: 20070809, end: 20070823
  2. CIFLOX [Suspect]
     Indication: PNEUMONIA
     Route: 048
     Dates: start: 20070801, end: 20070823
  3. COLIMYCINE [Suspect]
     Indication: PNEUMONIA
     Route: 055
     Dates: start: 20070801, end: 20070823
  4. NEBCIN [Concomitant]
     Indication: PNEUMONIA
     Dates: start: 20070801, end: 20070809
  5. FORTUM [Concomitant]
     Indication: PNEUMONIA
     Dates: start: 20070801, end: 20070809

REACTIONS (1)
  - ARTHRALGIA [None]
